FAERS Safety Report 5283635-6 (Version None)
Quarter: 2007Q1

REPORT INFORMATION
  Report Type: 
  Country: None (occurrence: None)
  Receive Date: 20070329
  Receipt Date: 20070329
  Transmission Date: 20070707
  Serious: Yes (Hospitalization)
  Sender: FDA-Public Use
  Company Number: None

PATIENT
  Age: 78 Year
  Sex: Female
  Weight: 62.7 kg

DRUGS (6)
  1. ONDANSETRON 2 MG/ML 20 ML BAXTER [Suspect]
     Indication: PROPHYLAXIS OF NAUSEA AND VOMITING
     Dosage: 32 MG ONCE INJ
     Dates: start: 20070321, end: 20070321
  2. METOPROLOL SUCCINATE [Concomitant]
  3. ASPIRIN [Concomitant]
  4. FAMOTIDINE [Concomitant]
  5. LEUCOVORIN CALCIUM [Concomitant]
  6. FLUOROURACIL [Concomitant]

REACTIONS (3)
  - DYSPEPSIA [None]
  - INFUSION RELATED REACTION [None]
  - NON-CARDIAC CHEST PAIN [None]
